FAERS Safety Report 13647711 (Version 1)
Quarter: 2017Q2

REPORT INFORMATION
  Report Type: Spontaneous
  Country: TR (occurrence: TR)
  Receive Date: 20170613
  Receipt Date: 20170613
  Transmission Date: 20170830
  Serious: Yes (Hospitalization)
  Sender: FDA-Public Use
  Company Number: TR-EDENBRIDGE PHARMACEUTICALS, LLC-TR-2017EDE000058

PATIENT
  Age: 60 Year
  Sex: Female

DRUGS (7)
  1. PREDNISOLONE SODIUM PHOSPHATE. [Suspect]
     Active Substance: PREDNISOLONE SODIUM PHOSPHATE
     Dosage: 25 MG, QD, ON ADMISSION
  2. AZATHIOPRINE. [Suspect]
     Active Substance: AZATHIOPRINE
     Dosage: 50 MG, QD, ONE MONTH PRIOR TO ADMISSION
  3. PREDNISOLONE SODIUM PHOSPHATE. [Suspect]
     Active Substance: PREDNISOLONE SODIUM PHOSPHATE
     Indication: COLITIS ULCERATIVE
     Dosage: DECREASED 5 MG WEEKLY
  4. AZATHIOPRINE. [Suspect]
     Active Substance: AZATHIOPRINE
     Indication: COLITIS ULCERATIVE
     Dosage: 100 MG, QD, SECOND WEEK
  5. AZATHIOPRINE. [Suspect]
     Active Substance: AZATHIOPRINE
     Dosage: 100 MG, QD, ON ADMISSION
  6. PREDNISOLONE SODIUM PHOSPHATE. [Suspect]
     Active Substance: PREDNISOLONE SODIUM PHOSPHATE
     Dosage: 40 MG, QD, ONE MONTH PRIOR TO ADMISSION
  7. MESALAMINE. [Suspect]
     Active Substance: MESALAMINE
     Indication: COLITIS ULCERATIVE
     Dosage: 4 G, QD

REACTIONS (8)
  - Brain abscess [Recovering/Resolving]
  - Musculoskeletal stiffness [Recovering/Resolving]
  - Meningitis [Recovering/Resolving]
  - Headache [Recovering/Resolving]
  - Asthenia [Recovering/Resolving]
  - Confusional state [Recovering/Resolving]
  - Pyrexia [Recovering/Resolving]
  - Hemiparesis [Recovering/Resolving]
